FAERS Safety Report 8979481 (Version 2)
Quarter: 2013Q2

REPORT INFORMATION
  Report Type: Report from Study
  Country: CA (occurrence: CA)
  Receive Date: 20121221
  Receipt Date: 20130506
  Transmission Date: 20140414
  Serious: Yes (Death)
  Sender: FDA-Public Use
  Company Number: CA-ROCHE-1169556

PATIENT
  Sex: Male
  Weight: 80.7 kg

DRUGS (9)
  1. CAPECITABINE [Suspect]
     Indication: GASTRIC CANCER
     Route: 048
     Dates: start: 2012
  2. ADALAT [Concomitant]
  3. METOPROLOL [Concomitant]
  4. RAMIPRIL [Concomitant]
  5. CRESTOR [Concomitant]
  6. RANITIDINE [Concomitant]
  7. METOCLOPRAMIDE [Concomitant]
  8. ONDANSETRON [Concomitant]
  9. DEXAMETHASONE [Concomitant]

REACTIONS (1)
  - Gastric cancer [Fatal]
